FAERS Safety Report 4327464-6 (Version None)
Quarter: 2004Q1

REPORT INFORMATION
  Report Type: 
  Country: None (occurrence: None)
  Receive Date: 20040325
  Receipt Date: 20040319
  Transmission Date: 20041129
  Serious: Yes (Hospitalization)
  Sender: FDA-Public Use
  Company Number: TCI2004A01046

PATIENT
  Age: 77 Year
  Sex: Male

DRUGS (6)
  1. LEUPROLIDE ACETATE [Suspect]
     Indication: METASTASES TO BONE
     Dosage: 3.75 MG (3.75 MG, 1 IN 28 D), SUBCUTANEOUS
     Route: 058
     Dates: start: 20011205, end: 20030101
  2. LEUPROLIDE ACETATE [Suspect]
     Indication: PROSTATE CANCER METASTATIC
     Dosage: 3.75 MG (3.75 MG, 1 IN 28 D), SUBCUTANEOUS
     Route: 058
     Dates: start: 20011205, end: 20030101
  3. LEUPROLIDE ACETATE [Suspect]
     Indication: METASTASES TO BONE
     Dosage: 3.75 MG (3.75 MG, 1 IN 28 D), SUBCUTANEOUS
     Route: 058
     Dates: start: 20040105
  4. LEUPROLIDE ACETATE [Suspect]
     Indication: PROSTATE CANCER METASTATIC
     Dosage: 3.75 MG (3.75 MG, 1 IN 28 D), SUBCUTANEOUS
     Route: 058
     Dates: start: 20040105
  5. ODYNE (FLUTAMIDE) (TABLET) [Suspect]
     Dosage: 325 MG (325 MG, 1 MG, 1 D), PER ORAL
     Route: 048
  6. PROSTAL (CHLORMADINONE ACETATE) (TABLETS) [Suspect]
     Dosage: 100 MG (100 MG, 1 D); PER ORAL
     Route: 048

REACTIONS (3)
  - DRUG INEFFECTIVE [None]
  - NEPHROTIC SYNDROME [None]
  - RENAL FAILURE ACUTE [None]
